FAERS Safety Report 15132881 (Version 1)
Quarter: 2018Q3

REPORT INFORMATION
  Report Type: Spontaneous
  Country: FR (occurrence: FR)
  Receive Date: 20180712
  Receipt Date: 20180712
  Transmission Date: 20181010
  Serious: Yes (Life-Threatening)
  Sender: FDA-Public Use
  Company Number: FR-TEVA-2018-FR-923119

PATIENT
  Age: 51 Year
  Sex: Female

DRUGS (3)
  1. ALCOOL [Suspect]
     Active Substance: ALCOHOL
     Indication: POISONING DELIBERATE
     Dosage: NP
     Route: 048
     Dates: start: 20180414, end: 20180414
  2. ZOLPIDEM [Suspect]
     Active Substance: ZOLPIDEM\ZOLPIDEM TARTRATE
     Indication: POISONING DELIBERATE
     Route: 048
     Dates: start: 20180414, end: 20180414
  3. PARACETAMOL [Concomitant]
     Active Substance: ACETAMINOPHEN
     Indication: POISONING DELIBERATE
     Dosage: 1 GRAM DAILY;
     Route: 048
     Dates: start: 20180414, end: 20180414

REACTIONS (2)
  - Coma [Recovered/Resolved]
  - Poisoning deliberate [Recovered/Resolved]

NARRATIVE: CASE EVENT DATE: 20180414
